FAERS Safety Report 8822346 (Version 2)
Quarter: 2012Q4

REPORT INFORMATION
  Report Type: Report from Study
  Country: JP (occurrence: JP)
  Receive Date: 20121003
  Receipt Date: 20121227
  Transmission Date: 20130627
  Serious: Yes (Other)
  Sender: FDA-Public Use
  Company Number: JP-VERTEX PHARMACEUTICAL INC.-AE-2012-010459

PATIENT
  Age: 63 Year
  Sex: Male

DRUGS (7)
  1. VX-950 (TELAPREVIR) [Suspect]
     Indication: CHRONIC HEPATITIS C
     Dosage: 1500 mg, qd
     Route: 048
     Dates: start: 20120414, end: 20120707
  2. RIBAVIRIN [Suspect]
     Indication: CHRONIC HEPATITIS C
     Dosage: 600 mg, qd
     Route: 048
     Dates: start: 20120414, end: 20120629
  3. RIBAVIRIN [Suspect]
     Dosage: 400 mg, qd
     Route: 048
     Dates: start: 20120630
  4. PEGINTERFERON ALFA-2B [Suspect]
     Indication: CHRONIC HEPATITIS C
     Dosage: 1.5 ?g/kg, week
     Route: 058
     Dates: start: 20120414
  5. SEVEN E.P [Concomitant]
     Dosage: 2 DF, qd
     Route: 048
  6. ALLORIN [Concomitant]
     Dosage: 100 mg, qd
     Route: 048
     Dates: start: 20120519
  7. PROMAC                             /00024401/ [Concomitant]
     Dosage: 150 mg, qd
     Route: 048

REACTIONS (1)
  - White blood cell count decreased [Recovered/Resolved]
